FAERS Safety Report 17130126 (Version 1)
Quarter: 2019Q4

REPORT INFORMATION
  Report Type: Spontaneous
  Country: US (occurrence: US)
  Receive Date: 20191209
  Receipt Date: 20191209
  Transmission Date: 20200122
  Serious: Yes (Hospitalization, Other)
  Sender: FDA-Public Use
  Company Number: US-PFIZER INC-2019528985

PATIENT
  Sex: Male

DRUGS (6)
  1. VALSARTAN. [Concomitant]
     Active Substance: VALSARTAN
     Dosage: UNK
  2. LYRICA [Suspect]
     Active Substance: PREGABALIN
     Indication: PAIN
     Dosage: UNK
  3. NORTHERA [Interacting]
     Active Substance: DROXIDOPA
     Dosage: 1800 MG, UNK
  4. NORTHERA [Interacting]
     Active Substance: DROXIDOPA
     Dosage: 2100 MG, UNK (ADDITIONAL 300 MG)
  5. CYMBALTA [Interacting]
     Active Substance: DULOXETINE HYDROCHLORIDE
     Indication: NEUROPATHY PERIPHERAL
     Dosage: UNK
  6. AIMOVIG [Interacting]
     Active Substance: ERENUMAB-AOOE
     Indication: HEADACHE
     Dosage: UNK

REACTIONS (10)
  - Drug interaction [Unknown]
  - Insomnia [Unknown]
  - Parkinson^s disease [Unknown]
  - Blood pressure increased [Unknown]
  - Tremor [Unknown]
  - Headache [Unknown]
  - Palpitations [Unknown]
  - Pain [Unknown]
  - Cerebrovascular accident [Unknown]
  - Somnolence [Unknown]

NARRATIVE: CASE EVENT DATE: 20191018
